FAERS Safety Report 23135918 (Version 1)
Quarter: 2023Q4

REPORT INFORMATION
  Report Type: Report from Study
  Country: PR (occurrence: PR)
  Receive Date: 20231101
  Receipt Date: 20231101
  Transmission Date: 20240110
  Serious: Yes (Other)
  Sender: FDA-Public Use
  Company Number: PR-ABBVIE-5476099

PATIENT
  Sex: Female

DRUGS (11)
  1. HUMIRA [Suspect]
     Active Substance: ADALIMUMAB
     Indication: Rheumatoid arthritis
     Dosage: FORM STRENGTH: 40 MILLIGRAMS
     Route: 058
     Dates: start: 20230601
  2. SYNTHROID [Concomitant]
     Active Substance: LEVOTHYROXINE SODIUM
     Indication: Hypothyroidism
     Dosage: 1 TABLET?FORM STRENGTH: 112 MICROGRAM?FREQUENCY: DAILY?START DATE TEXT: UNKNOWN
  3. VITAMIN D3 [Concomitant]
     Active Substance: CHOLECALCIFEROL
     Indication: Vitamin supplementation
     Dosage: 1 TABLET?FREQUENCY TEXT: DAILY?START DATE TEXT: UNKNOWN
  4. NORVASC [Concomitant]
     Active Substance: AMLODIPINE BESYLATE
     Indication: Hypertension
     Dosage: 1 TABLET?FORM STRENGTH: 10 MILLIGRAM?FREQUENCY: DAILY?START DATE: UNKNOWN
  5. METHOTREXATE [Concomitant]
     Active Substance: METHOTREXATE
     Indication: Arthritis
     Dosage: FORM STRENGTH: 2.5 MILLIGRAM?FREQUENCY: WEEKLY?START DATE TEXT: UNKNOWN
  6. METOPROLOL [Concomitant]
     Active Substance: METOPROLOL
     Indication: Hypertension
     Dosage: 1 TABLET?FORM STRENGTH: 50 MILLIGRAM?FREQUENCY: DAILY?START DATE: UNKNOWN
  7. ATORVASTATIN [Concomitant]
     Active Substance: ATORVASTATIN
     Indication: Blood cholesterol increased
     Dosage: 1 TABLET? FREQUENCY: DAILY ?START DATE: UNKNOWN
  8. LOSARTAN [Concomitant]
     Active Substance: LOSARTAN
     Indication: Hypertension
     Dosage: 1 TABLET?FORM STRENGTH: 100 MILLIGRAM?FREQUENCY: DAILY?START DATE: UNKNOWN
  9. FENOFIBRATE [Concomitant]
     Active Substance: FENOFIBRATE
     Indication: Blood triglycerides increased
     Dosage: 1 TABLET?FORM STRENGTH: 160 MILLIGRAM?FREQUENCY: DAILY?START DATE: UNKNOWN
  10. CARDURA [Concomitant]
     Active Substance: DOXAZOSIN MESYLATE
     Indication: Hypertension
     Dosage: 1 TABLET?FORM STRENGTH: 8 MILLIGRAM ?START DATE TEXT: UNKNOWN?FREQUENCY: DAILY
  11. FOLIC ACID [Concomitant]
     Active Substance: FOLIC ACID
     Indication: Vitamin supplementation
     Dosage: 1 TABLET?FORM STRENGTH: 1 MILLIGRAM?FREQUENCY: DAILY?START DATE: UNKNOWN

REACTIONS (1)
  - Breast mass [Not Recovered/Not Resolved]

NARRATIVE: CASE EVENT DATE: 20231001
